FAERS Safety Report 7419457-7 (Version None)
Quarter: 2011Q1

REPORT INFORMATION
  Report Type: 
  Country: None (occurrence: None)
  Receive Date: 20110302
  Receipt Date: 20101108
  Transmission Date: 20110831
  Serious: No
  Sender: FDA-Public Use
  Company Number: 021730

PATIENT
  Sex: Male
  Weight: 71.5 kg

DRUGS (2)
  1. ASACOL [Concomitant]
  2. CIMZIA [Suspect]
     Indication: CROHN'S DISEASE
     Dosage: 400 MG 1X/28 DAYS SUBCUTANEOUS, SUBCUTANEOUS
     Route: 058
     Dates: start: 20090325

REACTIONS (4)
  - ABDOMINAL PAIN [None]
  - FREQUENT BOWEL MOVEMENTS [None]
  - INFLUENZA LIKE ILLNESS [None]
  - PANCREATITIS [None]
